FAERS Safety Report 4979661-4 (Version None)
Quarter: 2006Q2

REPORT INFORMATION
  Report Type: 
  Country: None (occurrence: None)
  Receive Date: 20060421
  Receipt Date: 20060405
  Transmission Date: 20061013
  Serious: Yes (Hospitalization)
  Sender: FDA-Public Use
  Company Number: BR-JNJFOC-20060306927

PATIENT
  Age: 22 Year
  Sex: Male
  Weight: 49 kg

DRUGS (3)
  1. HALDOL [Suspect]
     Route: 048
  2. HALDOL [Suspect]
     Route: 048
  3. AKINETON [Concomitant]
     Route: 048

REACTIONS (7)
  - DIZZINESS [None]
  - DYSPNOEA [None]
  - HALLUCINATION [None]
  - HALLUCINATION, AUDITORY [None]
  - NAUSEA [None]
  - TREMOR [None]
  - VISION BLURRED [None]
